FAERS Safety Report 6045503-1 (Version None)
Quarter: 2009Q1

REPORT INFORMATION
  Report Type: 
  Country: None (occurrence: None)
  Receive Date: 20090121
  Receipt Date: 20090116
  Transmission Date: 20090719
  Serious: Yes (Death)
  Sender: FDA-Public Use
  Company Number: A0763795A

PATIENT
  Age: 48 Year
  Sex: Male

DRUGS (15)
  1. COREG [Suspect]
     Indication: HYPERTENSION
     Dosage: 12.5MG TWICE PER DAY
     Route: 048
     Dates: start: 20080901
  2. LANOXIN [Suspect]
     Indication: DRUG USE FOR UNKNOWN INDICATION
     Dosage: .125MG PER DAY
     Route: 048
     Dates: start: 20080901
  3. MORPHINE [Concomitant]
  4. HALOPERIDOL [Concomitant]
  5. SEROQUEL [Concomitant]
  6. LASIX [Concomitant]
  7. LIBRIUM [Concomitant]
  8. FENTANYL TRANSDERMAL SYSTEM [Concomitant]
  9. LORTAB [Concomitant]
  10. ATIVAN [Concomitant]
  11. MULTI-VITAMIN [Concomitant]
  12. PRILOSEC [Concomitant]
  13. HYDRALAZINE HCL [Concomitant]
  14. OTHER MEDICATIONS [Concomitant]
  15. POTASSIUM CHLORIDE [Concomitant]

REACTIONS (1)
  - DEATH [None]
